FAERS Safety Report 6400776-8 (Version None)
Quarter: 2009Q4

REPORT INFORMATION
  Report Type: 
  Country: None (occurrence: None)
  Receive Date: 20091014
  Receipt Date: 20091002
  Transmission Date: 20100525
  Serious: Yes (Other)
  Sender: FDA-Public Use
  Company Number: US-WATSON-2009-08231

PATIENT
  Sex: Male
  Weight: 111 kg

DRUGS (12)
  1. MYSOLINE [Suspect]
     Indication: EPILEPSY
     Dosage: 250 MG, 1 TID AND 2 QHS
     Route: 048
     Dates: start: 20090513, end: 20090801
  2. MYSOLINE [Suspect]
     Dosage: UNK
     Route: 065
     Dates: start: 19790101, end: 20090512
  3. TEGRETOL [Concomitant]
     Indication: CONVULSION
     Dosage: 100 MG, UNKNOWN
     Route: 065
     Dates: start: 19790101
  4. TEGRETOL [Concomitant]
     Dosage: 200 MG, UNKNOWN
     Route: 065
     Dates: start: 19790101
  5. GLYBURIDE [Concomitant]
     Indication: DRUG USE FOR UNKNOWN INDICATION
     Dosage: 5 MG, UNKNOWN
     Route: 065
  6. METFORMIN HYDROCHLORIDE [Concomitant]
     Indication: DRUG USE FOR UNKNOWN INDICATION
     Dosage: 500 MG, UNKNOWN
     Route: 065
  7. TRIAMTERENE AND HYDROCHLOROTHIAZIDE [Concomitant]
     Indication: DRUG USE FOR UNKNOWN INDICATION
     Dosage: 37.5 MG/25 MG, UNKNOWN
     Route: 065
  8. LISINOPRIL [Concomitant]
     Indication: DRUG USE FOR UNKNOWN INDICATION
     Dosage: 5 MG, UNKNOWN
     Route: 065
  9. ATENOLOL [Concomitant]
     Indication: DRUG USE FOR UNKNOWN INDICATION
     Dosage: 100 MG, UNKNOWN
     Route: 065
  10. NEXIUM [Concomitant]
     Indication: DRUG USE FOR UNKNOWN INDICATION
     Dosage: 40 MG, UNKNOWN
     Route: 065
  11. GEMFIBROZIL [Concomitant]
     Indication: DRUG USE FOR UNKNOWN INDICATION
     Dosage: 600 MG, UNKNOWN
     Route: 065
  12. MULTI-VITAMINS [Concomitant]
     Indication: DRUG USE FOR UNKNOWN INDICATION
     Dosage: UNK
     Route: 065

REACTIONS (4)
  - CONVULSION [None]
  - DRUG INEFFECTIVE [None]
  - FALL [None]
  - SKIN LACERATION [None]
